FAERS Safety Report 9129370 (Version 1)
Quarter: 2013Q1

REPORT INFORMATION
  Report Type: Report from Study
  Country: US (occurrence: US)
  Receive Date: 20130228
  Receipt Date: 20130228
  Transmission Date: 20140127
  Serious: No
  Sender: FDA-Public Use
  Company Number: US-ABBOTT-12P-163-1016483-00

PATIENT
  Age: 50 Year
  Sex: Male
  Weight: 115.32 kg

DRUGS (1)
  1. ANDROGEL [Suspect]
     Indication: BLOOD TESTOSTERONE DECREASED
     Dosage: 2 PUMPS
     Route: 061
     Dates: start: 20121011

REACTIONS (2)
  - Blood triglycerides increased [Not Recovered/Not Resolved]
  - Weight increased [Not Recovered/Not Resolved]
